FAERS Safety Report 8313937-8 (Version None)
Quarter: 2012Q2

REPORT INFORMATION
  Report Type: 
  Country: None (occurrence: None)
  Receive Date: 20120426
  Receipt Date: 20120426
  Transmission Date: 20120825
  Serious: Yes (Life-Threatening)
  Sender: FDA-Public Use
  Company Number: None

PATIENT
  Age: 64 Year
  Sex: Female
  Weight: 77.11 kg

DRUGS (1)
  1. BUTRANS [Suspect]
     Indication: NECK PAIN
     Dosage: 20 MG PATCH
     Route: 062
     Dates: start: 20120401, end: 20120407

REACTIONS (10)
  - SCREAMING [None]
  - FEELING ABNORMAL [None]
  - MYOCLONUS [None]
  - ERYTHEMA [None]
  - HALLUCINATION [None]
  - PAIN [None]
  - MUSCLE STRAIN [None]
  - PRURITUS [None]
  - TREMOR [None]
  - POSTURE ABNORMAL [None]
